FAERS Safety Report 21539139 (Version 1)
Quarter: 2022Q4

REPORT INFORMATION
  Report Type: Spontaneous
  Country: CY (occurrence: CY)
  Receive Date: 20221102
  Receipt Date: 20221102
  Transmission Date: 20230113
  Serious: Yes (Other)
  Sender: FDA-Public Use
  Company Number: CY-SUN PHARMACEUTICAL INDUSTRIES LTD-2022R1-361428

PATIENT
  Age: 25 Year
  Sex: Female

DRUGS (1)
  1. RILUZOLE [Suspect]
     Active Substance: RILUZOLE
     Indication: Familial amyotrophic lateral sclerosis
     Dosage: 50 MILLIGRAM, BID
     Route: 048

REACTIONS (1)
  - Condition aggravated [Unknown]
